FAERS Safety Report 6648963-8 (Version None)
Quarter: 2010Q1

REPORT INFORMATION
  Report Type: 
  Country: None (occurrence: None)
  Receive Date: 20100324
  Receipt Date: 20100318
  Transmission Date: 20100710
  Serious: Yes (Life-Threatening, Hospitalization)
  Sender: FDA-Public Use
  Company Number: FR-MERCK-1003FRA00065

PATIENT
  Age: 42 Year
  Sex: Male

DRUGS (3)
  1. SINGULAIR [Suspect]
     Indication: COUGH
     Route: 048
     Dates: start: 20080218, end: 20080228
  2. PSEUDOEPHEDRINE HYDROCHLORIDE [Suspect]
     Indication: COUGH
     Route: 048
     Dates: start: 20080218, end: 20080225
  3. CARBOCYSTEINE [Suspect]
     Indication: COUGH
     Route: 048
     Dates: start: 20080218, end: 20080228

REACTIONS (1)
  - STEVENS-JOHNSON SYNDROME [None]
